FAERS Safety Report 24446742 (Version 2)
Quarter: 2024Q4

REPORT INFORMATION
  Report Type: Spontaneous
  Country: US (occurrence: US)
  Receive Date: 20241016
  Receipt Date: 20241217
  Transmission Date: 20250114
  Serious: Yes (Other)
  Sender: PFIZER
  Company Number: US-PFIZER INC-PV202400133863

PATIENT
  Age: 73 Year
  Sex: Female
  Weight: 96.45 kg

DRUGS (2)
  1. IBRANCE [Suspect]
     Active Substance: PALBOCICLIB
     Indication: Breast cancer female
     Dosage: 100 MG, CYCLIC (1 CAPSULE DAILY 21 DAYS ON AND 7 DAYS OFF)
     Route: 048
     Dates: start: 20180307
  2. LETROZOLE [Concomitant]
     Active Substance: LETROZOLE
     Indication: Breast cancer female
     Dosage: UNK
     Dates: start: 20180307

REACTIONS (3)
  - Anaemia [Unknown]
  - Haematuria [Unknown]
  - Lymphocyte count decreased [Unknown]
